FAERS Safety Report 14398495 (Version 1)
Quarter: 2018Q1

REPORT INFORMATION
  Report Type: Spontaneous
  Country: US (occurrence: US)
  Receive Date: 20180116
  Receipt Date: 20180116
  Transmission Date: 20180509
  Serious: No
  Sender: FDA-Public Use
  Company Number: US-B.I. PHARMACEUTICALS,INC./RIDGEFIELD-2018-BI-001922

PATIENT
  Sex: Female

DRUGS (3)
  1. CATAPRES-TTS [Suspect]
     Active Substance: CLONIDINE
     Indication: ATTENTION DEFICIT/HYPERACTIVITY DISORDER
     Dosage: FORM STRENGTH: 2.5 MG (0.1 MG / DAY)
     Route: 061
     Dates: start: 2017, end: 2017
  2. CLONIDINE. [Concomitant]
     Active Substance: CLONIDINE
     Indication: SEIZURE
     Route: 065
     Dates: start: 2015
  3. CATAPRES-TTS [Suspect]
     Active Substance: CLONIDINE
     Dosage: FORM STRENGTH: 2.5 MG (0.1 MG / DAY)
     Route: 061
     Dates: start: 2017

REACTIONS (2)
  - Off label use [Unknown]
  - Hypersomnia [Recovered/Resolved]

NARRATIVE: CASE EVENT DATE: 2017
